FAERS Safety Report 6642710-1 (Version None)
Quarter: 2010Q1

REPORT INFORMATION
  Report Type: 
  Country: None (occurrence: None)
  Receive Date: 20100319
  Receipt Date: 20100317
  Transmission Date: 20100710
  Serious: Yes (Hospitalization)
  Sender: FDA-Public Use
  Company Number: DE-WYE-G05770010

PATIENT
  Sex: Female
  Weight: 50 kg

DRUGS (5)
  1. TORISEL [Suspect]
     Indication: MANTLE CELL LYMPHOMA
     Route: 042
     Dates: start: 20100218, end: 20100311
  2. DIMETINDENE MALEATE [Concomitant]
     Indication: PREMEDICATION
     Dosage: 4 MG, PRIOR TO TORISEL INFUSION
     Route: 042
     Dates: start: 20100218
  3. PANTOPRAZOLE [Concomitant]
  4. PAMIDRONATE DISODIUM [Concomitant]
     Indication: MANTLE CELL LYMPHOMA
     Route: 042
     Dates: start: 20090604, end: 20100308
  5. IBUPROFEN [Concomitant]

REACTIONS (2)
  - ATRIAL FIBRILLATION [None]
  - GASTROENTERITIS [None]
